FAERS Safety Report 8361264-5 (Version None)
Quarter: 2012Q2

REPORT INFORMATION
  Report Type: 
  Country: None (occurrence: None)
  Receive Date: 20120515
  Receipt Date: 20120508
  Transmission Date: 20120825
  Serious: Yes (Hospitalization)
  Sender: FDA-Public Use
  Company Number: US-MERCK-1205USA01708

PATIENT
  Age: 84 Year
  Sex: Female

DRUGS (3)
  1. HYDRODIURIL [Suspect]
     Route: 048
  2. PRINIVIL [Suspect]
     Route: 048
  3. CLINORIL [Suspect]
     Route: 048

REACTIONS (1)
  - PANCREATITIS CHRONIC [None]
